FAERS Safety Report 6750259-0 (Version None)
Quarter: 2010Q2

REPORT INFORMATION
  Report Type: 
  Country: None (occurrence: None)
  Receive Date: 20100601
  Receipt Date: 20100521
  Transmission Date: 20101027
  Serious: Yes (Death, Other)
  Sender: FDA-Public Use
  Company Number: JP-PFIZER INC-2010065789

PATIENT
  Age: 60 Year
  Sex: Male

DRUGS (6)
  1. SUNITINIB MALATE [Suspect]
     Indication: METASTATIC RENAL CELL CARCINOMA
     Dosage: 37.5 MG, DAILY
     Route: 048
     Dates: end: 20100520
  2. MERCAZOLE [Suspect]
     Indication: HYPERTHYROIDISM
     Dates: start: 20100514, end: 20100520
  3. LOXOPROFEN SODIUM [Suspect]
     Indication: MYALGIA
     Dates: end: 20100520
  4. LOSARTAN POTASSIUM AND HYDROCHLOROTHIAZIDE [Suspect]
     Indication: HYPERTENSION
     Dates: end: 20100520
  5. CALBLOCK [Suspect]
     Indication: HYPERTENSION
     Dates: end: 20100520
  6. SANCOBA [Suspect]
     Dates: end: 20100520

REACTIONS (4)
  - HYPERTENSION [None]
  - HYPERTHYROIDISM [None]
  - MYALGIA [None]
  - MYOCARDIAL ISCHAEMIA [None]
